FAERS Safety Report 21000720 (Version 1)
Quarter: 2022Q2

REPORT INFORMATION
  Report Type: Spontaneous
  Country: JP (occurrence: JP)
  Receive Date: 20220623
  Receipt Date: 20220623
  Transmission Date: 20220721
  Serious: Yes (Death, Other)
  Sender: FDA-Public Use
  Company Number: JP-BRISTOL-MYERS SQUIBB COMPANY-2022-062276

PATIENT
  Age: 57 Year
  Sex: Male

DRUGS (2)
  1. YERVOY [Suspect]
     Active Substance: IPILIMUMAB
     Indication: Malignant melanoma
     Route: 041
     Dates: start: 20220303, end: 20220324
  2. OPDIVO [Suspect]
     Active Substance: NIVOLUMAB
     Indication: Malignant melanoma
     Route: 041
     Dates: start: 20220303, end: 20220324

REACTIONS (4)
  - Neutrophil count decreased [Fatal]
  - Hepatic function abnormal [Fatal]
  - Acute respiratory failure [Fatal]
  - Pancreatitis [Fatal]

NARRATIVE: CASE EVENT DATE: 20220331
